FAERS Safety Report 5063521-7 (Version None)
Quarter: 2006Q3

REPORT INFORMATION
  Report Type: 
  Country: None (occurrence: None)
  Receive Date: 20060727
  Receipt Date: 20060718
  Transmission Date: 20061208
  Serious: Yes (Other)
  Sender: FDA-Public Use
  Company Number: GB-AVENTIS-200617585GDDC

PATIENT
  Age: 60 Year
  Sex: Female

DRUGS (3)
  1. TELFAST [Suspect]
     Indication: SEASONAL ALLERGY
     Route: 048
     Dates: start: 20060405, end: 20060526
  2. VERAPAMIL [Concomitant]
     Indication: ANGINA PECTORIS
     Route: 048
     Dates: start: 19920101
  3. VERAPAMIL [Concomitant]
     Indication: PALPITATIONS
     Route: 048
     Dates: start: 19920101

REACTIONS (2)
  - CHEST PAIN [None]
  - PALPITATIONS [None]
